FAERS Safety Report 6147421-7 (Version None)
Quarter: 2009Q2

REPORT INFORMATION
  Report Type: 
  Country: None (occurrence: None)
  Receive Date: 20090408
  Receipt Date: 20090325
  Transmission Date: 20091009
  Serious: Yes (Hospitalization)
  Sender: FDA-Public Use
  Company Number: FR-CELGENEUS-056-21880-09021609

PATIENT
  Sex: Male

DRUGS (3)
  1. REVLIMID [Suspect]
     Route: 048
     Dates: start: 20080904, end: 20080925
  2. ALKERAN [Suspect]
     Route: 048
     Dates: start: 20080904, end: 20080908
  3. DEXAMETHASONE [Suspect]
     Dosage: 20MG/5ML
     Route: 065
     Dates: start: 20080904, end: 20080908

REACTIONS (2)
  - AGRANULOCYTOSIS [None]
  - PANCYTOPENIA [None]
